FAERS Safety Report 9475639 (Version 3)
Quarter: 2013Q3

REPORT INFORMATION
  Report Type: Spontaneous
  Country: DE (occurrence: DE)
  Receive Date: 20130826
  Receipt Date: 20130828
  Transmission Date: 20140515
  Serious: Yes (Hospitalization, Other)
  Sender: FDA-Public Use
  Company Number: PHHY2013DE074021

PATIENT
  Sex: Female

DRUGS (1)
  1. CO-DIOVAN [Suspect]
     Dosage: UNK UKN, UNK
     Route: 048
     Dates: start: 200610

REACTIONS (6)
  - Anaemia [Recovering/Resolving]
  - Haemoglobin abnormal [Unknown]
  - Haematocrit abnormal [Unknown]
  - Intestinal polyp [Unknown]
  - Gastritis haemorrhagic [Unknown]
  - Blood erythropoietin decreased [Unknown]
